FAERS Safety Report 25157483 (Version 2)
Quarter: 2025Q4

REPORT INFORMATION
  Report Type: Report from Study
  Country: US (occurrence: US)
  Receive Date: 20250403
  Receipt Date: 20251016
  Transmission Date: 20260118
  Serious: No
  Sender: BRISTOL-MYERS SQUIBB COMPANY
  Company Number: US-BRISTOL-MYERS SQUIBB COMPANY-2025-049452

PATIENT
  Age: 85 Year
  Sex: Female

DRUGS (3)
  1. ELIQUIS [Suspect]
     Active Substance: APIXABAN
     Indication: Product used for unknown indication
  2. ELIQUIS [Suspect]
     Active Substance: APIXABAN
  3. ELIQUIS [Suspect]
     Active Substance: APIXABAN

REACTIONS (2)
  - Treatment noncompliance [Unknown]
  - Product use issue [Unknown]

NARRATIVE: CASE EVENT DATE: 20250301
